FAERS Safety Report 17481534 (Version 1)
Quarter: 2020Q1

REPORT INFORMATION
  Report Type: Spontaneous
  Country: DE (occurrence: DE)
  Receive Date: 20200302
  Receipt Date: 20200302
  Transmission Date: 20200409
  Serious: Yes (Other)
  Sender: FDA-Public Use
  Company Number: DE-AUROBINDO-AUR-APL-2020-010101

PATIENT
  Sex: Female

DRUGS (1)
  1. PIPERACILLIN AND TAZOBACTAM [Suspect]
     Active Substance: PIPERACILLIN SODIUM\TAZOBACTAM SODIUM
     Indication: PNEUMONIA
     Dosage: UNK
     Route: 042
     Dates: end: 202002

REACTIONS (6)
  - Circulatory collapse [Unknown]
  - Muscle twitching [Unknown]
  - Muscular weakness [Unknown]
  - Asthenia [Unknown]
  - Paraesthesia [Unknown]
  - Aphasia [Unknown]

NARRATIVE: CASE EVENT DATE: 202002
